FAERS Safety Report 7570354-6 (Version None)
Quarter: 2011Q2

REPORT INFORMATION
  Report Type: 
  Country: None (occurrence: None)
  Receive Date: 20110624
  Receipt Date: 20110609
  Transmission Date: 20111010
  Serious: Yes (Hospitalization)
  Sender: FDA-Public Use
  Company Number: US-WATSON-2011-09105

PATIENT
  Age: 32 Year
  Sex: Male

DRUGS (2)
  1. FENTANYL [Suspect]
     Indication: SUICIDE ATTEMPT
     Dosage: TWO 50 MCG/HR PATCHES
     Route: 048
  2. ALPRAZOLAM [Suspect]
     Indication: SUICIDE ATTEMPT
     Dosage: 6-8 MG, SINGLE
     Route: 048

REACTIONS (4)
  - TOXICITY TO VARIOUS AGENTS [None]
  - INTENTIONAL OVERDOSE [None]
  - INCORRECT ROUTE OF DRUG ADMINISTRATION [None]
  - SUICIDE ATTEMPT [None]
